FAERS Safety Report 7642860-7 (Version None)
Quarter: 2011Q3

REPORT INFORMATION
  Report Type: 
  Country: None (occurrence: None)
  Receive Date: 20110728
  Receipt Date: 20110718
  Transmission Date: 20111222
  Serious: Yes (Other)
  Sender: FDA-Public Use
  Company Number: US-US-EMD SERONO, INC.-7071983

PATIENT
  Sex: Female

DRUGS (3)
  1. REBIF [Suspect]
     Indication: MULTIPLE SCLEROSIS
     Route: 058
     Dates: start: 20100917
  2. NAPROXEN [Concomitant]
     Indication: PAIN IN EXTREMITY
     Route: 048
  3. NAPROXEN [Concomitant]
     Indication: ARTHRALGIA

REACTIONS (4)
  - INFLUENZA LIKE ILLNESS [None]
  - PLANTAR FASCIITIS [None]
  - ANTINUCLEAR ANTIBODY POSITIVE [None]
  - VITAMIN B12 DEFICIENCY [None]
